FAERS Safety Report 8176905-5 (Version None)
Quarter: 2012Q1

REPORT INFORMATION
  Report Type: 
  Country: None (occurrence: None)
  Receive Date: 20120301
  Receipt Date: 20120222
  Transmission Date: 20120608
  Serious: Yes (Hospitalization)
  Sender: FDA-Public Use
  Company Number: CH-B.I. PHARMACEUTICALS,INC./RIDGEFIELD-2012-EU-01127GD

PATIENT
  Age: 71 Year
  Sex: Male

DRUGS (2)
  1. CLONIDINE [Suspect]
     Indication: BACK PAIN
     Route: 037
  2. CLONIDINE [Suspect]
     Dosage: 6 MG LEAKED OUT IN THE PUMP POCKET DURING PUMP REFILL

REACTIONS (6)
  - ACCIDENTAL OVERDOSE [None]
  - HYPERTENSION [None]
  - LOSS OF CONSCIOUSNESS [None]
  - ALTERED STATE OF CONSCIOUSNESS [None]
  - SPEECH DISORDER [None]
  - DRUG ADMINISTERED AT INAPPROPRIATE SITE [None]
